FAERS Safety Report 16731683 (Version 2)
Quarter: 2019Q3

REPORT INFORMATION
  Report Type: Spontaneous
  Country: US (occurrence: US)
  Receive Date: 20190822
  Receipt Date: 20190830
  Transmission Date: 20191005
  Serious: No
  Sender: FDA-Public Use
  Company Number: US-SA-2019SA220560

PATIENT
  Age: 49 Year
  Sex: Female

DRUGS (1)
  1. DUPIXENT [Suspect]
     Active Substance: DUPILUMAB
     Dosage: UNK
     Route: 058
     Dates: start: 201808

REACTIONS (5)
  - Product dose omission [Unknown]
  - Condition aggravated [Unknown]
  - Skin disorder [Unknown]
  - Seasonal allergy [Unknown]
  - Intentional dose omission [Unknown]
